FAERS Safety Report 8505352-9 (Version None)
Quarter: 2012Q3

REPORT INFORMATION
  Report Type: 
  Country: None (occurrence: None)
  Receive Date: 20120712
  Receipt Date: 20120707
  Transmission Date: 20120928
  Serious: Yes (Hospitalization, Other)
  Sender: FDA-Public Use
  Company Number: US-BAYER-2011-075287

PATIENT
  Age: 22 Year
  Sex: Female

DRUGS (3)
  1. YAZ [Suspect]
     Dosage: UNK
     Dates: start: 20040101, end: 20090101
  2. LOESTRIN 24 FE [Concomitant]
     Dosage: UNK
  3. FEMCON FE [Concomitant]
     Dosage: UNK

REACTIONS (4)
  - GALLBLADDER INJURY [None]
  - PAIN [None]
  - INJURY [None]
  - BILIARY DYSKINESIA [None]
